FAERS Safety Report 5916048-1 (Version None)
Quarter: 2008Q4

REPORT INFORMATION
  Report Type: 
  Country: None (occurrence: None)
  Receive Date: 20081013
  Receipt Date: 20081008
  Transmission Date: 20090506
  Serious: Yes (Hospitalization)
  Sender: FDA-Public Use
  Company Number: FR-BRISTOL-MYERS SQUIBB COMPANY-14364590

PATIENT
  Age: 74 Year
  Sex: Female

DRUGS (3)
  1. COAPROVEL FILM-COATED TABS 300/12.5 MG [Suspect]
     Indication: HYPERTENSION
     Dosage: 1 DOSAGEFORM = 1 TAB
     Route: 048
  2. HYPERIUM [Suspect]
     Indication: HYPERTENSION
     Route: 048
  3. AMLOD [Suspect]
     Indication: HYPERTENSION
     Route: 048

REACTIONS (5)
  - CONFUSIONAL STATE [None]
  - FALL [None]
  - HYPOTENSION [None]
  - PYREXIA [None]
  - URINARY TRACT INFECTION [None]
